FAERS Safety Report 19918106 (Version 1)
Quarter: 2021Q4

REPORT INFORMATION
  Report Type: Spontaneous
  Country: US (occurrence: US)
  Receive Date: 20211004
  Receipt Date: 20211004
  Transmission Date: 20220304
  Serious: No
  Sender: FDA-Public Use
  Company Number: US-OTSUKA-2021_007002

PATIENT
  Sex: Female

DRUGS (2)
  1. ABILIFY [Suspect]
     Active Substance: ARIPIPRAZOLE
     Indication: Major depression
     Dosage: UNK
     Route: 065
  2. ABILIFY [Suspect]
     Active Substance: ARIPIPRAZOLE
     Indication: Adjuvant therapy

REACTIONS (1)
  - Akathisia [Unknown]
